FAERS Safety Report 19226488 (Version 1)
Quarter: 2021Q2

REPORT INFORMATION
  Report Type: Spontaneous
  Country: AU (occurrence: AU)
  Receive Date: 20210505
  Receipt Date: 20210505
  Transmission Date: 20210717
  Serious: Yes (Other)
  Sender: FDA-Public Use
  Company Number: AU-LUPIN PHARMACEUTICALS INC.-2020-11808

PATIENT
  Age: 73 Year
  Sex: Male

DRUGS (2)
  1. AZACITIDINE INJECTION [Suspect]
     Active Substance: AZACITIDINE
     Dosage: UNK UNK, QD, UNK DAILY INJECTION OF AZACITIDINE FOR ONE WEEK (CYCLE 2)
     Route: 058
     Dates: start: 201902
  2. AZACITIDINE INJECTION [Suspect]
     Active Substance: AZACITIDINE
     Indication: MYELODYSPLASTIC SYNDROME
     Dosage: UNK UNK, QD, DAILY INJECTION OF AZACITIDINE FOR ONE WEEK (CYCLE 1)
     Route: 058
     Dates: start: 201812

REACTIONS (1)
  - Acute febrile neutrophilic dermatosis [Recovered/Resolved]

NARRATIVE: CASE EVENT DATE: 2019
